FAERS Safety Report 12876022 (Version 1)
Quarter: 2016Q4

REPORT INFORMATION
  Report Type: Spontaneous
  Country: US (occurrence: US)
  Receive Date: 20161024
  Receipt Date: 20161024
  Transmission Date: 20170207
  Serious: No
  Sender: FDA-Public Use
  Company Number: US-JAZZ-2016-US-015267

PATIENT
  Sex: Female

DRUGS (29)
  1. MULTIVITAMINS [Concomitant]
     Active Substance: VITAMINS
  2. ATIVAN [Concomitant]
     Active Substance: LORAZEPAM
  3. BRINTELLIX [Concomitant]
     Active Substance: VORTIOXETINE HYDROBROMIDE
  4. BENZONATATE. [Concomitant]
     Active Substance: BENZONATATE
  5. LORAZEPAM. [Concomitant]
     Active Substance: LORAZEPAM
  6. ZITHROMAX [Concomitant]
     Active Substance: AZITHROMYCIN DIHYDRATE
  7. XYREM [Suspect]
     Active Substance: SODIUM OXYBATE
     Indication: CATAPLEXY
     Dosage: DOSE ADJUSTMENTS
     Route: 048
     Dates: start: 201303, end: 201406
  8. PROMETHAZINE [Concomitant]
     Active Substance: PROMETHAZINE\PROMETHAZINE HYDROCHLORIDE
  9. NEURONTIN [Concomitant]
     Active Substance: GABAPENTIN
  10. LAMICTAL [Concomitant]
     Active Substance: LAMOTRIGINE
  11. BUSPIRONE HCL [Concomitant]
     Active Substance: BUSPIRONE HYDROCHLORIDE
  12. SOVALDI [Concomitant]
     Active Substance: SOFOSBUVIR
  13. MUCINEX [Concomitant]
     Active Substance: GUAIFENESIN
  14. PROAIR HFA [Concomitant]
     Active Substance: ALBUTEROL SULFATE
  15. PROBIOTIC [Concomitant]
     Active Substance: PROBIOTICS NOS
  16. PROGESTERONE. [Concomitant]
     Active Substance: PROGESTERONE
  17. PROVIGIL [Concomitant]
     Active Substance: MODAFINIL
  18. ABILIFY [Concomitant]
     Active Substance: ARIPIPRAZOLE
  19. XYREM [Suspect]
     Active Substance: SODIUM OXYBATE
     Dosage: 4.5 G, BID
     Route: 048
     Dates: start: 201406
  20. EFFEXOR [Concomitant]
     Active Substance: VENLAFAXINE HYDROCHLORIDE
  21. RIBAVIRIN. [Concomitant]
     Active Substance: RIBAVIRIN
  22. NUVIGIL [Concomitant]
     Active Substance: ARMODAFINIL
  23. PEGINTRON [Concomitant]
     Active Substance: PEGINTERFERON ALFA-2B
  24. ZYRTEC [Concomitant]
     Active Substance: CETIRIZINE HYDROCHLORIDE
  25. LEXAPRO [Concomitant]
     Active Substance: ESCITALOPRAM OXALATE
  26. XYREM [Suspect]
     Active Substance: SODIUM OXYBATE
     Indication: NARCOLEPSY
     Dosage: 2.25 G, BID
     Route: 048
     Dates: start: 201303, end: 201303
  27. VITAMIN D [Concomitant]
     Active Substance: CHOLECALCIFEROL
  28. PROZAC [Concomitant]
     Active Substance: FLUOXETINE HYDROCHLORIDE
  29. ZOFRAN [Concomitant]
     Active Substance: ONDANSETRON HYDROCHLORIDE

REACTIONS (1)
  - Cough [Not Recovered/Not Resolved]
